FAERS Safety Report 7955334-0 (Version None)
Quarter: 2011Q4

REPORT INFORMATION
  Report Type: 
  Country: None (occurrence: None)
  Receive Date: 20111202
  Receipt Date: 20111121
  Transmission Date: 20120403
  Serious: Yes (Other)
  Sender: FDA-Public Use
  Company Number: US-ELI_LILLY_AND_COMPANY-US201002003675

PATIENT
  Sex: Female

DRUGS (3)
  1. FORTEO [Suspect]
     Indication: OSTEOPOROSIS
     Dosage: 20 UG, DAILY (1/D)
     Dates: start: 20090301
  2. VITAMIN TAB [Concomitant]
  3. FORTEO [Suspect]
     Dosage: 20 UG, QD
     Dates: end: 20110301

REACTIONS (14)
  - ABDOMINAL DISTENSION [None]
  - WEIGHT INCREASED [None]
  - CHEST PAIN [None]
  - ABDOMINAL PAIN UPPER [None]
  - TEMPOROMANDIBULAR JOINT SYNDROME [None]
  - HYPOAESTHESIA [None]
  - COLON CANCER METASTATIC [None]
  - MUSCLE SPASMS [None]
  - OSTEOARTHRITIS [None]
  - PAIN [None]
  - PSEUDOMYXOMA PERITONEI [None]
  - FEELING ABNORMAL [None]
  - HEAD DISCOMFORT [None]
  - MASTICATION DISORDER [None]
